FAERS Safety Report 17407238 (Version 1)
Quarter: 2020Q3

REPORT INFORMATION
  Report Type: Other
  Country: GB (occurrence: GB)
  Receive Date: 20200212
  Receipt Date: 20200212
  Transmission Date: 20201105
  Serious: Yes (Disabling)
  Sender: FDA-Public Use
  Company Number: GB-CELLTRION INC.-2020GB018542

PATIENT

DRUGS (5)
  1. POLATUZUMAB VEDOTIN. [Suspect]
     Active Substance: POLATUZUMAB VEDOTIN
     Indication: DIFFUSE LARGE B-CELL LYMPHOMA REFRACTORY
     Dosage: 120 MG, EVERY 21 DAYS, INFUSION
     Route: 042
     Dates: start: 20191212, end: 20191212
  2. POLATUZUMAB VEDOTIN. [Suspect]
     Active Substance: POLATUZUMAB VEDOTIN
     Indication: DIFFUSE LARGE B-CELL LYMPHOMA RECURRENT
  3. BISOPROLOL [Concomitant]
     Active Substance: BISOPROLOL
     Indication: SINUS TACHYCARDIA
     Dosage: 2.5 MG, DAILY
     Route: 048
     Dates: start: 20191002
  4. RITUXIMAB (UNKNOWN) [Suspect]
     Active Substance: RITUXIMAB
     Indication: DIFFUSE LARGE B-CELL LYMPHOMA RECURRENT
  5. RITUXIMAB (UNKNOWN) [Suspect]
     Active Substance: RITUXIMAB
     Indication: DIFFUSE LARGE B-CELL LYMPHOMA REFRACTORY
     Dosage: UNK
     Route: 065
     Dates: start: 20191211

REACTIONS (5)
  - Sciatica [Unknown]
  - Protein urine present [Unknown]
  - Chest pain [Unknown]
  - Bone pain [Unknown]
  - Blood urine present [Unknown]

NARRATIVE: CASE EVENT DATE: 20191212
